FAERS Safety Report 10619929 (Version 1)
Quarter: 2014Q4

REPORT INFORMATION
  Report Type: Spontaneous
  Country: US (occurrence: None)
  Receive Date: 20141126
  Receipt Date: 20141126
  Transmission Date: 20150529
  Serious: Yes (Disabling)
  Sender: FDA-Public Use
  Company Number: PR-AE14-001256

PATIENT
  Sex: Male

DRUGS (1)
  1. MURINE TEARS FOR DRY EYES [Suspect]
     Active Substance: POLYVINYL ALCOHOL\POVIDONE
     Indication: EYE LUBRICATION THERAPY
     Route: 047
     Dates: start: 20141031, end: 20141101

REACTIONS (3)
  - Chemical injury [None]
  - Blindness unilateral [None]
  - Eye burns [None]

NARRATIVE: CASE EVENT DATE: 20141101
